FAERS Safety Report 9832450 (Version 1)
Quarter: 2014Q1

REPORT INFORMATION
  Report Type: Spontaneous
  Country: BR (occurrence: BR)
  Receive Date: 20140121
  Receipt Date: 20140121
  Transmission Date: 20141002
  Serious: Yes (Hospitalization)
  Sender: FDA-Public Use
  Company Number: BR-009507513-1401BRA005489

PATIENT
  Age: 32 Year
  Sex: Female
  Weight: 69 kg

DRUGS (2)
  1. NUVARING [Suspect]
     Indication: CONTRACEPTION
     Dosage: UNK, CYCLICAL
     Route: 067
     Dates: start: 2010, end: 2011
  2. NUVARING [Suspect]
     Dosage: UNK, CYCLICAL
     Route: 067
     Dates: start: 201310

REACTIONS (9)
  - Myomectomy [Unknown]
  - Uterine leiomyoma [Recovered/Resolved]
  - Glucose tolerance impaired [Not Recovered/Not Resolved]
  - Drug administration error [Unknown]
  - Incorrect drug administration duration [Unknown]
  - Gastric infection [Not Recovered/Not Resolved]
  - Metrorrhagia [Not Recovered/Not Resolved]
  - Breast pain [Not Recovered/Not Resolved]
  - Breast swelling [Not Recovered/Not Resolved]
